FAERS Safety Report 11111944 (Version 1)
Quarter: 2015Q2

REPORT INFORMATION
  Report Type: Spontaneous
  Country: US (occurrence: None)
  Receive Date: 20150513
  Receipt Date: 20150513
  Transmission Date: 20150821
  Serious: Yes (Hospitalization, Other)
  Sender: FDA-Public Use
  Company Number: None

PATIENT
  Age: 41 Year
  Sex: Male
  Weight: 75.75 kg

DRUGS (6)
  1. LORTABIPL [Concomitant]
  2. DULOXETINE [Suspect]
     Active Substance: DULOXETINE
     Indication: GENERALISED ANXIETY DISORDER
     Route: 048
     Dates: start: 20140608, end: 20150506
  3. GEODON [Concomitant]
     Active Substance: ZIPRASIDONE HYDROCHLORIDE\ZIPRASIDONE MESYLATE
  4. DULOXETINE [Suspect]
     Active Substance: DULOXETINE
     Indication: SCHIZOAFFECTIVE DISORDER
     Route: 048
     Dates: start: 20140608, end: 20150506
  5. AMBIEN [Concomitant]
     Active Substance: ZOLPIDEM TARTRATE
  6. ABRILIFY MAINTENA [Concomitant]

REACTIONS (2)
  - Product substitution issue [None]
  - Suicidal ideation [None]

NARRATIVE: CASE EVENT DATE: 20141202
